FAERS Safety Report 7086830-9 (Version None)
Quarter: 2010Q4

REPORT INFORMATION
  Report Type: 
  Country: None (occurrence: None)
  Receive Date: 20101105
  Receipt Date: 20101022
  Transmission Date: 20110411
  Serious: Yes (Hospitalization)
  Sender: FDA-Public Use
  Company Number: SE-AMGEN-US442136

PATIENT

DRUGS (6)
  1. ETANERCEPT [Suspect]
     Indication: RHEUMATOID ARTHRITIS
     Dosage: 50 MG, QWK
     Route: 058
     Dates: start: 20080301, end: 20100501
  2. PREDNISOLONE [Concomitant]
     Dosage: UNK UNK, UNK
     Route: 048
     Dates: start: 20090902
  3. METHOTREXATE [Concomitant]
     Dosage: 20 MG, QWK
     Route: 048
  4. METHOTREXATE [Concomitant]
     Dosage: DOSE 20 MG WEEKLY
  5. NSAID'S [Concomitant]
     Dosage: UNK UNK, UNK
     Dates: start: 20090902
  6. NSAID'S [Concomitant]
     Dosage: DOSE UNKNOWN
     Dates: start: 20090902

REACTIONS (1)
  - MULTIPLE MYELOMA [None]
